FAERS Safety Report 5046803-4 (Version None)
Quarter: 2006Q2

REPORT INFORMATION
  Report Type: 
  Country: None (occurrence: None)
  Receive Date: 20060630
  Receipt Date: 20060620
  Transmission Date: 20061013
  Serious: Yes (Hospitalization)
  Sender: FDA-Public Use
  Company Number: TCI2006A02534

PATIENT
  Age: 67 Year
  Sex: Male

DRUGS (5)
  1. ACTOS [Suspect]
     Indication: DIABETES MELLITUS
     Dosage: 1 TAB, (1 TAB,  1 IN 1 D) PER ORAL
     Route: 048
     Dates: start: 20031201
  2. TEGRETOL [Suspect]
     Dosage: PER ORAL
     Route: 048
     Dates: start: 20060315
  3. ASPIRIN [Concomitant]
  4. EUGLUCON (GLIBENCLAMIDE) [Concomitant]
  5. PRAVASTATIN SODIUM [Concomitant]

REACTIONS (28)
  - AORTIC DILATATION [None]
  - AORTIC VALVE INCOMPETENCE [None]
  - ARTERIOSCLEROSIS [None]
  - BLOOD ALKALINE PHOSPHATASE INCREASED [None]
  - BLOOD GLUCOSE INCREASED [None]
  - BLOOD LACTATE DEHYDROGENASE INCREASED [None]
  - BRONCHITIS [None]
  - C-REACTIVE PROTEIN INCREASED [None]
  - CALCINOSIS [None]
  - CAROTID ARTERY STENOSIS [None]
  - CEREBRAL ATROPHY [None]
  - EYELID OEDEMA [None]
  - GAMMA-GLUTAMYLTRANSFERASE INCREASED [None]
  - GASTRITIS ATROPHIC [None]
  - HAEMORRHAGE SUBCUTANEOUS [None]
  - HEPATIC STEATOSIS [None]
  - HIATUS HERNIA [None]
  - HICCUPS [None]
  - MYOCARDIAL ISCHAEMIA [None]
  - NEUROGENIC BLADDER [None]
  - OESOPHAGEAL DISORDER [None]
  - PLEURAL FIBROSIS [None]
  - PYREXIA [None]
  - RASH [None]
  - RASH PUSTULAR [None]
  - RENAL CYST [None]
  - VENTRICULAR HYPOKINESIA [None]
  - WHITE BLOOD CELL COUNT INCREASED [None]
